FAERS Safety Report 7773266-8 (Version None)
Quarter: 2011Q3

REPORT INFORMATION
  Report Type: 
  Country: None (occurrence: None)
  Receive Date: 20110922
  Receipt Date: 20110909
  Transmission Date: 20111222
  Serious: Yes (Other)
  Sender: FDA-Public Use
  Company Number: GB-MYLANLABS-2011S1018899

PATIENT
  Age: 76 Year
  Sex: Female
  Weight: 67 kg

DRUGS (29)
  1. SIMAVASTATIN [Suspect]
     Indication: PRODUCT USED FOR UNKNOWN INDICATION
     Dates: start: 20110725, end: 20110822
  2. ACETAMINOPHEN [Concomitant]
     Indication: PRODUCT USED FOR UNKNOWN INDICATION
     Dates: start: 20110614, end: 20110626
  3. ZOPICLONE [Concomitant]
     Indication: PRODUCT USED FOR UNKNOWN INDICATION
     Dates: start: 20110718
  4. ZOPICLONE [Concomitant]
  5. GABAPENTIN [Concomitant]
     Indication: PRODUCT USED FOR UNKNOWN INDICATION
     Dates: start: 20110718
  6. SLOZEM [Concomitant]
     Dates: start: 20110519, end: 20110712
  7. GABAPENTIN [Concomitant]
     Dates: start: 20110519, end: 20110714
  8. HYDROXOCOBALAMIN [Concomitant]
     Dates: start: 20110622, end: 20110623
  9. SLOZEM [Concomitant]
     Indication: PRODUCT USED FOR UNKNOWN INDICATION
     Dates: start: 20110718
  10. HYPROMELLOSE [Concomitant]
     Dates: start: 20110519, end: 20110712
  11. RAMIPRIL [Concomitant]
     Dates: start: 20110519, end: 20110712
  12. SIMAVASTATIN [Suspect]
     Dates: start: 20110901
  13. BECLOMETHASONE DIPROPIONATE [Concomitant]
     Indication: PRODUCT USED FOR UNKNOWN INDICATION
     Dates: start: 20110614, end: 20110712
  14. DOCUSATE SODIUM [Concomitant]
     Indication: PRODUCT USED FOR UNKNOWN INDICATION
     Dates: start: 20110718
  15. HYDROXOCOBALAMIN [Concomitant]
     Indication: PRODUCT USED FOR UNKNOWN INDICATION
     Dates: start: 20110816, end: 20110817
  16. LOFEPRAMINE [Concomitant]
     Indication: PRODUCT USED FOR UNKNOWN INDICATION
     Dates: start: 20110418
  17. TRIMETHOPRIM [Concomitant]
     Indication: PRODUCT USED FOR UNKNOWN INDICATION
     Dates: start: 20110608, end: 20110615
  18. AQUEOUS /00498501/ [Concomitant]
     Indication: PRODUCT USED FOR UNKNOWN INDICATION
     Dates: start: 20110519, end: 20110616
  19. CLOPIDOGREL [Concomitant]
     Indication: PRODUCT USED FOR UNKNOWN INDICATION
     Dates: start: 20110617, end: 20110617
  20. HYPROMELLOSE [Concomitant]
     Indication: PRODUCT USED FOR UNKNOWN INDICATION
     Dates: start: 20110718
  21. MEPTAZINOL [Concomitant]
     Indication: PRODUCT USED FOR UNKNOWN INDICATION
     Dates: start: 20110815
  22. BECLOMETHASONE DIPROPIONATE [Concomitant]
     Dates: start: 20110718
  23. CALCIUM CARBONATE [Concomitant]
     Indication: PRODUCT USED FOR UNKNOWN INDICATION
     Dates: start: 20110519
  24. DOCUSATE SODIUM [Concomitant]
     Dates: start: 20110519, end: 20110714
  25. LORATADINE [Concomitant]
     Indication: PRODUCT USED FOR UNKNOWN INDICATION
     Dates: start: 20110617, end: 20110717
  26. HYDROXOCOBALAMIN [Concomitant]
     Dates: start: 20110720, end: 20110721
  27. OMEPRAZOLE [Concomitant]
     Indication: PRODUCT USED FOR UNKNOWN INDICATION
     Dates: start: 20110718
  28. OMEPRAZOLE [Concomitant]
     Dates: start: 20110519, end: 20110712
  29. RAMIPRIL [Concomitant]
     Indication: PRODUCT USED FOR UNKNOWN INDICATION
     Dates: start: 20110718

REACTIONS (1)
  - CONTUSION [None]
